FAERS Safety Report 23981765 (Version 1)
Quarter: 2024Q2

REPORT INFORMATION
  Report Type: Spontaneous
  Country: US (occurrence: None)
  Receive Date: 20240615
  Receipt Date: 20240615
  Transmission Date: 20240716
  Serious: Yes (Hospitalization)
  Sender: FDA-Public Use
  Company Number: None

PATIENT
  Age: 62 Year
  Sex: Female

DRUGS (2)
  1. TERIPARATIDE [Suspect]
     Active Substance: TERIPARATIDE
     Indication: Osteoporotic fracture
     Dosage: FREQUENCY : DAILY;?
  2. TERIPARATIDE [Suspect]
     Active Substance: TERIPARATIDE
     Indication: Pathological fracture

REACTIONS (1)
  - Femur fracture [None]

NARRATIVE: CASE EVENT DATE: 20240609
